FAERS Safety Report 8809780 (Version 1)
Quarter: 2012Q4

REPORT INFORMATION
  Report Type: 
  Country: CA (occurrence: CA)
  Receive Date: 20120926
  Receipt Date: 20120926
  Transmission Date: 20130627
  Serious: Yes (Disabling)
  Sender: FDA-Public Use
  Company Number: CA-MYLANLABS-2012S1019243

PATIENT
  Age: 69 Year
  Sex: Female

DRUGS (19)
  1. VANCOMYCIN [Suspect]
     Indication: EVIDENCE BASED TREATMENT
     Dosage: 1g IV infusion every 8 hours
     Route: 041
  2. GENTAMICIN [Suspect]
     Indication: EVIDENCE BASED TREATMENT
     Dosage: 60mg every 8 hours
     Route: 042
  3. RIFAMPICIN [Concomitant]
     Indication: EVIDENCE BASED TREATMENT
     Route: 048
  4. CEFTRIAXONE [Concomitant]
     Route: 065
  5. SPIRONOLACTONE [Concomitant]
     Route: 065
  6. PERINDOPRIL [Concomitant]
     Route: 065
  7. METOPROLOL [Concomitant]
     Route: 065
  8. FUROSEMIDE [Concomitant]
     Route: 065
  9. ASPIRIN [Concomitant]
     Route: 065
  10. LANSOPRAZOLE [Concomitant]
     Route: 065
  11. LEVOTHYROXINE SODIUM [Concomitant]
     Route: 065
  12. ROPINIROLE [Concomitant]
     Route: 065
  13. METHOTREXATE [Concomitant]
     Route: 065
  14. ETANERCEPT [Concomitant]
     Route: 065
  15. PREDNISONE [Concomitant]
     Route: 065
  16. SALBUTAMOL [Concomitant]
     Route: 065
  17. PIPERACILLIN W/TAZOBACTAM /01606301/ [Concomitant]
     Indication: PNEUMONIA
     Route: 065
  18. MOXIFLOXACIN [Concomitant]
     Indication: PNEUMONIA
     Route: 048
  19. ENOXAPARIN SODIUM [Concomitant]
     Indication: PULMONARY EMBOLISM
     Route: 065

REACTIONS (5)
  - Renal impairment [Unknown]
  - Tremor [Recovered/Resolved]
  - Infusion related reaction [None]
  - Activities of daily living impaired [None]
  - No therapeutic response [None]
